FAERS Safety Report 7749844-9 (Version None)
Quarter: 2011Q3

REPORT INFORMATION
  Report Type: 
  Country: None (occurrence: None)
  Receive Date: 20110914
  Receipt Date: 20110901
  Transmission Date: 20111222
  Serious: Yes (Hospitalization)
  Sender: FDA-Public Use
  Company Number: JP-NOVOPROD-334433

PATIENT

DRUGS (11)
  1. ROHYPNOL [Concomitant]
     Dosage: 2 MG, QD
     Route: 048
  2. DILTIAZEM HCL [Concomitant]
     Dosage: 30 MG, QD
     Route: 048
  3. BROTIZOLAM [Concomitant]
     Dosage: 0.25 MG, QD
     Route: 048
  4. ISOSORBIDE DINITRATE [Concomitant]
     Dosage: UNK
     Route: 048
  5. BISOPROLOL FUMARATE [Concomitant]
     Dosage: 5 MG, QD
     Route: 048
  6. NORVASC [Concomitant]
     Dosage: 5 MG, QD
     Route: 048
  7. VICTOZA [Suspect]
     Dosage: 0.9 MG/ QD
     Route: 058
     Dates: start: 20110311
  8. NEOPHAGEN                          /00467204/ [Concomitant]
     Dosage: 100 ML, QD
     Route: 042
  9. VICTOZA [Suspect]
     Indication: TYPE 2 DIABETES MELLITUS
     Dosage: 0.6 MG/ QD
     Route: 058
     Dates: start: 20110311
  10. ALKIXA [Concomitant]
     Dosage: 300 MG, QD
     Route: 048
  11. LASIX [Concomitant]
     Dosage: 20 MG, QD
     Route: 048

REACTIONS (2)
  - TREATMENT NONCOMPLIANCE [None]
  - HYPOGLYCAEMIC UNCONSCIOUSNESS [None]
